FAERS Safety Report 15819577 (Version 2)
Quarter: 2019Q1

REPORT INFORMATION
  Report Type: Spontaneous
  Country: US (occurrence: US)
  Receive Date: 20190114
  Receipt Date: 20190325
  Transmission Date: 20190417
  Serious: Yes (Hospitalization)
  Sender: FDA-Public Use
  Company Number: US-TAKEDA-2019MPI000374

PATIENT
  Age: 69 Year
  Sex: Male

DRUGS (43)
  1. DILTIZEM [Concomitant]
     Dosage: 240 MG, UNK
     Dates: start: 20180825
  2. ELIQUIS [Concomitant]
     Active Substance: APIXABAN
  3. CIPROFLOXACIN. [Concomitant]
     Active Substance: CIPROFLOXACIN
  4. ALPRAZOLAM. [Concomitant]
     Active Substance: ALPRAZOLAM
  5. OXYCODONE [Concomitant]
     Active Substance: OXYCODONE
  6. NARCAN [Concomitant]
     Active Substance: NALOXONE HYDROCHLORIDE
  7. NINLARO [Suspect]
     Active Substance: IXAZOMIB CITRATE
     Indication: PLASMA CELL MYELOMA
     Dosage: 3 MILLIGRAM, 1/WEEK
     Route: 048
  8. POMALYST [Suspect]
     Active Substance: POMALIDOMIDE
     Indication: PRODUCT USED FOR UNKNOWN INDICATION
     Dosage: UNK
     Route: 065
  9. SPIRIVA [Concomitant]
     Active Substance: TIOTROPIUM BROMIDE MONOHYDRATE
  10. HYDROMORPHONE [Concomitant]
     Active Substance: HYDROMORPHONE
  11. CALCITRIOL. [Concomitant]
     Active Substance: CALCITRIOL
  12. NITROFURANTIN [Concomitant]
     Active Substance: NITROFURANTOIN
     Dosage: UNK
  13. PREDNISONE. [Concomitant]
     Active Substance: PREDNISONE
  14. KETOROLAC [Concomitant]
     Active Substance: KETOROLAC\KETOROLAC TROMETHAMINE
  15. DUTASTERIDE. [Concomitant]
     Active Substance: DUTASTERIDE
     Dosage: 0.5 MG, UNK
     Dates: start: 20180125
  16. INSULIN [Concomitant]
     Active Substance: INSULIN NOS
     Dosage: 0.5 G, UNK
     Dates: start: 20180726
  17. ZOFRAN [Concomitant]
     Active Substance: ONDANSETRON HYDROCHLORIDE
  18. CLINDAMYCIN. [Concomitant]
     Active Substance: CLINDAMYCIN
     Dosage: UNK
  19. PULMOZYME [Concomitant]
     Active Substance: DORNASE ALFA
  20. BISACODYL. [Concomitant]
     Active Substance: BISACODYL
  21. DOXYCYCLINE                        /00055702/ [Concomitant]
     Active Substance: DOXYCYCLINE
  22. LEVEMIR [Concomitant]
     Active Substance: INSULIN DETEMIR
  23. ESCITALOPRAM [Concomitant]
     Active Substance: ESCITALOPRAM OXALATE
     Dosage: 5 MG, UNK
     Dates: start: 20180716
  24. DEMEROL [Concomitant]
     Active Substance: MEPERIDINE HYDROCHLORIDE
  25. SEVELAMER [Concomitant]
     Active Substance: SEVELAMER
  26. APAP [Concomitant]
     Active Substance: ACETAMINOPHEN
  27. DEXAMETHASON                       /00016001/ [Suspect]
     Active Substance: DEXAMETHASONE
     Indication: PRODUCT USED FOR UNKNOWN INDICATION
     Dosage: UNK
     Route: 065
  28. DARZALEX [Concomitant]
     Active Substance: DARATUMUMAB
     Dosage: UNK
  29. FINASTERIDE. [Concomitant]
     Active Substance: FINASTERIDE
  30. TERAZOSIN [Concomitant]
     Active Substance: TERAZOSIN\TERAZOSIN HYDROCHLORIDE
  31. PROCHLORPERAZ [Concomitant]
     Active Substance: PROCHLORPERAZINE MALEATE
  32. ALPRAZOLAM. [Concomitant]
     Active Substance: ALPRAZOLAM
  33. NINLARO [Suspect]
     Active Substance: IXAZOMIB CITRATE
     Dosage: 4 MILLIGRAM
     Route: 048
     Dates: start: 20181011
  34. BUMETANIDE. [Concomitant]
     Active Substance: BUMETANIDE
     Dosage: 2 MG, UNK
     Dates: start: 20180815
  35. HYDRALAZINE [Concomitant]
     Active Substance: HYDRALAZINE HYDROCHLORIDE
  36. HUMALOG [Concomitant]
     Active Substance: INSULIN LISPRO
  37. REVLIMID [Concomitant]
     Active Substance: LENALIDOMIDE
  38. TIROSINT [Concomitant]
     Active Substance: LEVOTHYROXINE SODIUM
     Dosage: 75 UG, UNK
     Dates: start: 20180727
  39. TAMSULOSIN [Concomitant]
     Active Substance: TAMSULOSIN
  40. PARICALCITOL. [Concomitant]
     Active Substance: PARICALCITOL
  41. GATIFLOXACIN. [Concomitant]
     Active Substance: GATIFLOXACIN
  42. ATROPINE. [Concomitant]
     Active Substance: ATROPINE
  43. ONDANSETRON [Concomitant]
     Active Substance: ONDANSETRON

REACTIONS (4)
  - Fatigue [Unknown]
  - Upper limb fracture [Not Recovered/Not Resolved]
  - Constipation [Unknown]
  - Off label use [Unknown]

NARRATIVE: CASE EVENT DATE: 201808
